FAERS Safety Report 5880504-5 (Version None)
Quarter: 2008Q3

REPORT INFORMATION
  Report Type: 
  Country: None (occurrence: None)
  Receive Date: 20080912
  Receipt Date: 20080612
  Transmission Date: 20090109
  Serious: Yes (Other)
  Sender: FDA-Public Use
  Company Number: US-ABBOTT-08P-163-0453988-00

PATIENT
  Sex: Female
  Weight: 59.02 kg

DRUGS (10)
  1. HUMIRA [Suspect]
     Indication: RHEUMATOID ARTHRITIS
     Route: 058
     Dates: start: 20040129, end: 20071109
  2. HUMIRA [Suspect]
     Route: 058
     Dates: start: 20080522, end: 20080611
  3. METHOTREXATE [Suspect]
     Indication: RHEUMATOID ARTHRITIS
     Dosage: 2.5 MG, 4 PER WEEK
     Route: 048
     Dates: start: 20031201, end: 20071017
  4. FENTANYL [Concomitant]
     Indication: PAIN
     Route: 062
  5. VITAMIN A-Z [Concomitant]
     Indication: VITAMIN SUPPLEMENTATION
     Route: 048
  6. LAXATIVES [Concomitant]
     Indication: BOWEL MOVEMENT IRREGULARITY
     Route: 048
  7. DOCUSATE SODIUM [Concomitant]
     Indication: BOWEL MOVEMENT IRREGULARITY
     Route: 048
  8. HORMONE ESPIRADOL [Concomitant]
     Indication: HORMONE REPLACEMENT THERAPY
     Route: 062
  9. LARECT [Concomitant]
     Indication: PAIN
     Route: 048
  10. PREDNISONE TAB [Concomitant]
     Indication: RHEUMATOID ARTHRITIS
     Route: 048
     Dates: start: 20080401

REACTIONS (12)
  - ABDOMINAL PAIN [None]
  - BILIARY DILATATION [None]
  - DYSPNOEA [None]
  - HEPATIC ENZYME INCREASED [None]
  - HEPATIC FIBROSIS [None]
  - HEPATIC LESION [None]
  - HEPATIC NECROSIS [None]
  - KIDNEY INFECTION [None]
  - NAUSEA [None]
  - PAIN [None]
  - PLEURAL EFFUSION [None]
  - RESPIRATORY DISORDER [None]
